FAERS Safety Report 7456368-5 (Version None)
Quarter: 2011Q2

REPORT INFORMATION
  Report Type: 
  Country: None (occurrence: None)
  Receive Date: 20110426
  Receipt Date: 20110411
  Transmission Date: 20111010
  Serious: Yes (Hospitalization)
  Sender: FDA-Public Use
  Company Number: 2011MA003704

PATIENT
  Age: 17 Year
  Sex: Female

DRUGS (1)
  1. PROPYLTHIOURACIL TAB [Suspect]
     Indication: BASEDOW'S DISEASE
     Dosage: 100 MG; OD;

REACTIONS (6)
  - SYNCOPE [None]
  - LEUKOCYTOCLASTIC VASCULITIS [None]
  - ANTINEUTROPHIL CYTOPLASMIC ANTIBODY POSITIVE [None]
  - HYPOCHROMIC ANAEMIA [None]
  - PULMONARY HAEMORRHAGE [None]
  - PURPURA [None]
